FAERS Safety Report 5001703-0 (Version None)
Quarter: 2006Q2

REPORT INFORMATION
  Report Type: 
  Country: None (occurrence: None)
  Receive Date: 20060515
  Receipt Date: 20060505
  Transmission Date: 20061013
  Serious: Yes (Hospitalization)
  Sender: FDA-Public Use
  Company Number: 2006PK00983

PATIENT
  Age: 26751 Day
  Sex: Male

DRUGS (11)
  1. CASODEX [Suspect]
     Indication: PROSTATE CANCER
     Route: 048
     Dates: start: 20060207
  2. ZOLADEX [Suspect]
     Indication: PROSTATE CANCER
     Route: 058
     Dates: start: 20060207
  3. ENABETA [Concomitant]
     Indication: HYPERTENSION
  4. GLIBENHEXAL [Concomitant]
     Indication: DIABETES MELLITUS
  5. METFORMIN [Concomitant]
     Indication: DIABETES MELLITUS
  6. PREDNISOLONE [Concomitant]
     Indication: ASTHMA
  7. SALBUTAMOL [Concomitant]
     Indication: ASTHMA
  8. SALBUHEXAL [Concomitant]
     Indication: ASTHMA
  9. THEOPHYLLINE [Concomitant]
     Indication: ASTHMA
  10. CAFEA [Concomitant]
     Indication: SLEEP DISORDER
  11. ZOLPIDEM TARTRATE [Concomitant]
     Indication: SLEEP DISORDER

REACTIONS (3)
  - CYSTITIS [None]
  - PROSTATITIS [None]
  - URINARY RETENTION [None]
